FAERS Safety Report 7097588-1 (Version None)
Quarter: 2010Q4

REPORT INFORMATION
  Report Type: 
  Country: None (occurrence: None)
  Receive Date: 20101111
  Receipt Date: 20101029
  Transmission Date: 20110411
  Serious: Yes (Death)
  Sender: FDA-Public Use
  Company Number: US-MYLANLABS-2010S1020350

PATIENT
  Age: 55 Year
  Sex: Male

DRUGS (5)
  1. PAXIL CR [Suspect]
     Indication: SUICIDE ATTEMPT
     Route: 048
  2. PAXIL CR [Suspect]
     Route: 048
  3. PAROXETINE HCL [Suspect]
     Indication: SUICIDE ATTEMPT
     Route: 048
  4. ATOMOXETINE HCL [Suspect]
     Route: 065
  5. WELLBUTRIN SR [Concomitant]
     Route: 065

REACTIONS (4)
  - ELECTROCARDIOGRAM QT PROLONGED [None]
  - OVERDOSE [None]
  - SEROTONIN SYNDROME [None]
  - SUICIDE ATTEMPT [None]
